FAERS Safety Report 9528041 (Version 4)
Quarter: 2015Q1

REPORT INFORMATION
  Report Type: Report from Study
  Country: CA (occurrence: CA)
  Receive Date: 20130917
  Receipt Date: 20150107
  Transmission Date: 20150721
  Serious: Yes (Other)
  Sender: FDA-Public Use
  Company Number: CA-ROCHE-1276110

PATIENT
  Age: 58 Year
  Sex: Male

DRUGS (9)
  1. AVODART [Concomitant]
     Active Substance: DUTASTERIDE
  2. METFORMIN [Concomitant]
     Active Substance: METFORMIN HYDROCHLORIDE
     Dosage: OCCASIONALLY WHEN CAN^T TAKE THE INSULIN
     Route: 065
  3. INSULIN [Concomitant]
     Active Substance: INSULIN NOS
  4. SIMVASTATIN. [Concomitant]
     Active Substance: SIMVASTATIN
  5. COVERSYL [Concomitant]
     Active Substance: PERINDOPRIL
  6. RITUXAN [Suspect]
     Active Substance: RITUXIMAB
     Indication: OFF LABEL USE
     Dosage: CYCLE 2?RECENT DOSE OF RITUXIMAB WAS ON 12/NOV/2012
     Route: 042
     Dates: start: 20131125
  7. BISOPROLOL [Concomitant]
     Active Substance: BISOPROLOL
  8. RITUXAN [Suspect]
     Active Substance: RITUXIMAB
     Indication: IMMUNOGLOBULIN G4 RELATED SCLEROSING DISEASE
     Dosage: CYCLE 1 ?RECENT DOSE OF RITUXIMAB WAS ON 12/NOV/2012
     Route: 042
     Dates: start: 20121029
  9. TAMSULOSIN [Concomitant]
     Active Substance: TAMSULOSIN

REACTIONS (4)
  - Lower extremity mass [Not Recovered/Not Resolved]
  - Cough [Not Recovered/Not Resolved]
  - Malaise [Not Recovered/Not Resolved]
  - Diabetes mellitus inadequate control [Not Recovered/Not Resolved]

NARRATIVE: CASE EVENT DATE: 20130821
